FAERS Safety Report 12334871 (Version 2)
Quarter: 2016Q2

REPORT INFORMATION
  Report Type: Spontaneous
  Country: GB (occurrence: GB)
  Receive Date: 20160504
  Receipt Date: 20160509
  Transmission Date: 20160815
  Serious: Yes (Life-Threatening, Other)
  Sender: FDA-Public Use
  Company Number: GB-OTSUKA-US-2014-14169

PATIENT
  Sex: Female

DRUGS (3)
  1. DACOGEN [Suspect]
     Active Substance: DECITABINE
     Indication: OVARIAN CANCER
     Dosage: 90 MG/M2, QD
     Route: 042
  2. CARBOPLATIN. [Suspect]
     Active Substance: CARBOPLATIN
     Indication: OVARIAN CANCER
     Dosage: UNK
     Route: 042
  3. DACOGEN [Suspect]
     Active Substance: DECITABINE
     Dosage: 45 MG/M2, QD
     Route: 042

REACTIONS (24)
  - Aspartate aminotransferase abnormal [Unknown]
  - Pain [Unknown]
  - Inappropriate schedule of drug administration [Unknown]
  - Vomiting [Unknown]
  - Hypoalbuminaemia [Unknown]
  - Disease progression [Unknown]
  - Thrombocytopenia [Unknown]
  - Toxicity to various agents [Unknown]
  - Nausea [Unknown]
  - Constipation [Unknown]
  - Haemoglobin [Unknown]
  - Leukopenia [Unknown]
  - Hypophosphataemia [Unknown]
  - Product use issue [Unknown]
  - Fatigue [Unknown]
  - Dyspnoea [Unknown]
  - Lymphopenia [Unknown]
  - Hypersensitivity [Unknown]
  - Hyperglycaemia [Unknown]
  - Neutropenic infection [Unknown]
  - Gamma-glutamyltransferase [Unknown]
  - Neutropenia [Unknown]
  - Drug ineffective [Unknown]
  - Incorrect dose administered [Unknown]
